FAERS Safety Report 24953602 (Version 1)
Quarter: 2025Q1

REPORT INFORMATION
  Report Type: Spontaneous
  Country: US (occurrence: US)
  Receive Date: 20250211
  Receipt Date: 20250211
  Transmission Date: 20250409
  Serious: No
  Sender: TEVA
  Company Number: US-TEVA-VS-3291405

PATIENT
  Age: 6 Month
  Sex: Male
  Weight: 8.5 kg

DRUGS (3)
  1. PREDNISOLONE [Suspect]
     Active Substance: PREDNISOLONE
     Indication: Product used for unknown indication
     Route: 065
  2. VIGAFYDE [Suspect]
     Active Substance: VIGABATRIN
     Indication: Gastrooesophageal reflux disease
     Dosage: 100MG/ML 5 ML
     Route: 048
     Dates: start: 20250115
  3. FAMOTIDINE [Suspect]
     Active Substance: FAMOTIDINE
     Indication: Product used for unknown indication
     Route: 065

REACTIONS (1)
  - Hunger [Unknown]
